FAERS Safety Report 9900250 (Version 1)
Quarter: 2014Q1

REPORT INFORMATION
  Report Type: Spontaneous
  Country: GB (occurrence: GB)
  Receive Date: 20140215
  Receipt Date: 20140215
  Transmission Date: 20141002
  Serious: Yes (Disabling, Other)
  Sender: FDA-Public Use
  Company Number: GB-ACCORD-021882

PATIENT
  Age: 61 Year
  Sex: Female
  Weight: 65.31 kg

DRUGS (1)
  1. SIMVASTATIN [Suspect]
     Indication: ANGIOPLASTY
     Route: 048
     Dates: start: 20120214, end: 20120614

REACTIONS (3)
  - Pain [Unknown]
  - Off label use [Unknown]
  - Muscle injury [Not Recovered/Not Resolved]
